FAERS Safety Report 17962781 (Version 2)
Quarter: 2020Q4

REPORT INFORMATION
  Report Type: Spontaneous
  Country: FR (occurrence: FR)
  Receive Date: 20200630
  Receipt Date: 20201106
  Transmission Date: 20210113
  Serious: Yes (Hospitalization)
  Sender: FDA-Public Use
  Company Number: FR-TEVA-2020-FR-1792788

PATIENT
  Age: 62 Year
  Sex: Male
  Weight: 95 kg

DRUGS (9)
  1. METRONIDAZOLE. [Suspect]
     Active Substance: METRONIDAZOLE
     Indication: TOOTH INFECTION
     Route: 048
     Dates: start: 20200512, end: 20200527
  2. INDAPAMIDE. [Suspect]
     Active Substance: INDAPAMIDE
     Indication: HYPERTENSION
     Route: 048
     Dates: end: 20200529
  3. SPIRAMYCINE [Suspect]
     Active Substance: SPIRAMYCIN
     Indication: TOOTH INFECTION
     Route: 048
     Dates: start: 20200512, end: 20200527
  4. EUPRESSYL [Concomitant]
     Active Substance: URAPIDIL
  5. FLECAINIDE (ACETATE DE) [Concomitant]
     Active Substance: FLECAINIDE
  6. OMEPRAZOLE. [Suspect]
     Active Substance: OMEPRAZOLE
     Indication: PRODUCT USED FOR UNKNOWN INDICATION
     Dosage: 20 MG
     Route: 048
     Dates: end: 20200529
  7. FUROSEMIDE. [Concomitant]
     Active Substance: FUROSEMIDE
  8. LERCANIDIPINE (CHLORHYDRATE DE) [Concomitant]
     Active Substance: LERCANIDIPINE HYDROCHLORIDE
  9. PERINDOPRIL [Concomitant]
     Active Substance: PERINDOPRIL

REACTIONS (1)
  - Acute generalised exanthematous pustulosis [Recovered/Resolved]

NARRATIVE: CASE EVENT DATE: 20200520
